FAERS Safety Report 9717521 (Version 1)
Quarter: 2013Q4

REPORT INFORMATION
  Report Type: Spontaneous
  Country: US (occurrence: US)
  Receive Date: 20131127
  Receipt Date: 20131127
  Transmission Date: 20140711
  Serious: Yes (Hospitalization)
  Sender: FDA-Public Use
  Company Number: US-GILEAD-2009-0020541

PATIENT
  Age: 57 Year
  Sex: Female
  Weight: 51.71 kg

DRUGS (16)
  1. LETAIRIS [Suspect]
     Indication: PULMONARY ARTERIAL HYPERTENSION
     Route: 048
  2. WARFARIN [Concomitant]
  3. FUROSEMIDE [Concomitant]
  4. CRESTOR [Concomitant]
  5. NITROGLYCERIN [Concomitant]
  6. CARVEDILOL [Concomitant]
  7. LISINOPRIL [Concomitant]
  8. COMBIVENT [Concomitant]
  9. DIPHENHYDRAMINE [Concomitant]
  10. HYDROCODONE-APAP [Concomitant]
  11. COFEX-DM [Concomitant]
  12. PREDNISONE [Concomitant]
  13. HYDROXYCHLOR [Concomitant]
  14. ALPRAZOLAM [Concomitant]
  15. IPRATROPIUM/SOL ALBUTEROL [Concomitant]
  16. K-DUR 20 [Concomitant]

REACTIONS (2)
  - Dyspnoea [Recovered/Resolved]
  - Local swelling [Recovered/Resolved]
